FAERS Safety Report 6200963-8 (Version None)
Quarter: 2009Q2

REPORT INFORMATION
  Report Type: 
  Country: None (occurrence: None)
  Receive Date: 20090525
  Receipt Date: 20090512
  Transmission Date: 20091009
  Serious: Yes (Hospitalization)
  Sender: FDA-Public Use
  Company Number: FR-ELI_LILLY_AND_COMPANY-FR200902004797

PATIENT
  Age: 81 Year
  Sex: Female
  Weight: 55 kg

DRUGS (4)
  1. FORTEO [Suspect]
     Indication: OSTEOPOROSIS
     Dosage: 20 UG, DAILY (1/D)
     Route: 058
     Dates: start: 20080311
  2. DURAGESIC-100 [Concomitant]
     Indication: ARTHRALGIA
     Dosage: 50 MG, EVERY 3 DAYS
     Route: 062
     Dates: start: 20080101, end: 20080801
  3. LAMALINE [Concomitant]
     Indication: ARTHRALGIA
     Dosage: UNK, UNK
     Route: 048
     Dates: start: 20080101, end: 20080801
  4. VOLTAREN [Concomitant]
     Indication: BONE PAIN
     Dosage: 75 MG, DAILY (1/D)
     Route: 048
     Dates: end: 20080801

REACTIONS (3)
  - ARTHRALGIA [None]
  - FALL [None]
  - RIB FRACTURE [None]
